FAERS Safety Report 8066240-8 (Version None)
Quarter: 2012Q1

REPORT INFORMATION
  Report Type: 
  Country: None (occurrence: None)
  Receive Date: 20120117
  Receipt Date: 20120106
  Transmission Date: 20120608
  Serious: Yes (Life-Threatening)
  Sender: FDA-Public Use
  Company Number: 1155553

PATIENT
  Age: 63 Year
  Sex: Female

DRUGS (4)
  1. OXALIPLATIN [Suspect]
     Indication: COLORECTAL CANCER METASTATIC
     Dosage: 1ST CYCLE: 130 MG/M^2, INTRAVENOUS DRIP ; 2ND CYCLE: 130 MG/M^2 INTRAVENOUS DRIP
     Route: 041
     Dates: start: 20111123, end: 20111123
  2. OXALIPLATIN [Suspect]
     Indication: COLORECTAL CANCER METASTATIC
     Dosage: 1ST CYCLE: 130 MG/M^2, INTRAVENOUS DRIP ; 2ND CYCLE: 130 MG/M^2 INTRAVENOUS DRIP
     Route: 041
     Dates: start: 20111214, end: 20111214
  3. CAPECITABINE [Concomitant]
  4. DEXTROSE [Concomitant]

REACTIONS (3)
  - DYSPNOEA [None]
  - OEDEMA MOUTH [None]
  - LOCAL SWELLING [None]
